FAERS Safety Report 14656908 (Version 1)
Quarter: 2018Q1

REPORT INFORMATION
  Report Type: Spontaneous
  Country: US (occurrence: US)
  Receive Date: 20180319
  Receipt Date: 20180319
  Transmission Date: 20180509
  Serious: No
  Sender: FDA-Public Use
  Company Number: US-SA-2017SA142305

PATIENT
  Age: 79 Year
  Sex: Female

DRUGS (3)
  1. DELSYM [Suspect]
     Active Substance: DEXTROMETHORPHAN
     Route: 065
  2. NASACORT ALLERGY 24HR [Interacting]
     Active Substance: TRIAMCINOLONE ACETONIDE
     Indication: COUGH
     Dosage: 1 SPRAY IN EACH NOSTRIL PER DAY
     Route: 045
  3. NASACORT ALLERGY 24HR [Suspect]
     Active Substance: TRIAMCINOLONE ACETONIDE
     Indication: COUGH
     Dosage: 55MCG EACH NOSTRIL,SPRAY
     Route: 045

REACTIONS (2)
  - Drug interaction [Unknown]
  - Cough [Not Recovered/Not Resolved]
